FAERS Safety Report 22049373 (Version 1)
Quarter: 2023Q1

REPORT INFORMATION
  Report Type: Spontaneous
  Country: CN (occurrence: CN)
  Receive Date: 20230301
  Receipt Date: 20230301
  Transmission Date: 20230417
  Serious: Yes (Other)
  Sender: FDA-Public Use
  Company Number: CN-KYOWAKIRIN-2023AKK002825

PATIENT
  Sex: Male

DRUGS (2)
  1. FILGRASTIM [Suspect]
     Active Substance: FILGRASTIM
     Indication: Haematopoietic stem cell mobilisation
     Dosage: 300 MICROGRAM, BID
     Route: 058
     Dates: start: 20230211, end: 20230214
  2. FILGRASTIM [Suspect]
     Active Substance: FILGRASTIM
     Dosage: 150 MICROGRAM, BID
     Route: 058
     Dates: start: 20230211, end: 20230214

REACTIONS (2)
  - Interstitial lung disease [Recovering/Resolving]
  - Off label use [Unknown]

NARRATIVE: CASE EVENT DATE: 20230211
